FAERS Safety Report 5583522-X (Version None)
Quarter: 2008Q1

REPORT INFORMATION
  Report Type: 
  Country: None (occurrence: None)
  Receive Date: 20080107
  Receipt Date: 20080102
  Transmission Date: 20080703
  Serious: Yes (Death, Other)
  Sender: FDA-Public Use
  Company Number: TH-BOEHRINGER INGELHEIM PHARMACEUTICALS, INC.-2008-DE-00014GD

PATIENT

DRUGS (1)
  1. TRIOMUNE [Suspect]
     Indication: HIV INFECTION
     Route: 048

REACTIONS (9)
  - BACTERIAL SEPSIS [None]
  - CRYPTOCOCCOSIS [None]
  - CYTOMEGALOVIRUS CHORIORETINITIS [None]
  - DEATH [None]
  - IMMUNE RECONSTITUTION SYNDROME [None]
  - MYCOBACTERIUM AVIUM COMPLEX INFECTION [None]
  - PNEUMOCYSTIS JIROVECI PNEUMONIA [None]
  - PULMONARY TUBERCULOSIS [None]
  - TUBERCULOSIS [None]
